FAERS Safety Report 9746340 (Version 1)
Quarter: 2013Q4

REPORT INFORMATION
  Report Type: Spontaneous
  Country: US (occurrence: US)
  Receive Date: 20131211
  Receipt Date: 20131211
  Transmission Date: 20140711
  Serious: No
  Sender: FDA-Public Use
  Company Number: US-ENDO PHARMACEUTICALS INC.-PRED20130027

PATIENT
  Sex: Female

DRUGS (2)
  1. PREDNISONE TABLETS 10MG [Suspect]
     Indication: PRODUCT USED FOR UNKNOWN INDICATION
     Route: 048
  2. PREDNISONE TABLETS 10MG [Suspect]
     Dosage: DOSEPACK
     Route: 048
     Dates: start: 2013

REACTIONS (2)
  - Energy increased [Recovered/Resolved]
  - Psychomotor hyperactivity [Recovered/Resolved]
